FAERS Safety Report 17269835 (Version 3)
Quarter: 2020Q1

REPORT INFORMATION
  Report Type: Spontaneous
  Country: US (occurrence: US)
  Receive Date: 20200114
  Receipt Date: 20200316
  Transmission Date: 20200409
  Serious: Yes (Other)
  Sender: FDA-Public Use
  Company Number: US-SA-2020SA006746

PATIENT
  Age: 55 Year
  Sex: Female
  Weight: 97.52 kg

DRUGS (6)
  1. ANASTROZOLE. [Concomitant]
     Active Substance: ANASTROZOLE
     Dosage: UNK
     Dates: start: 20140203, end: 20170131
  2. ADRIAMYCIN [Concomitant]
     Active Substance: DOXORUBICIN HYDROCHLORIDE
     Indication: BREAST CANCER FEMALE
     Dosage: UNK
  3. TAXOTERE [Suspect]
     Active Substance: DOCETAXEL
     Indication: BREAST CANCER FEMALE
     Dosage: 156 MG, Q3W
     Route: 042
     Dates: start: 20130501, end: 20130501
  4. TAXOTERE [Suspect]
     Active Substance: DOCETAXEL
     Dosage: 156 MG, Q3W
     Route: 042
     Dates: start: 20130901, end: 20130901
  5. LETROZOLE. [Concomitant]
     Active Substance: LETROZOLE
  6. NEOSAR [Concomitant]
     Active Substance: CYCLOPHOSPHAMIDE
     Indication: BREAST CANCER FEMALE

REACTIONS (2)
  - Psychological trauma [Unknown]
  - Alopecia [Recovering/Resolving]

NARRATIVE: CASE EVENT DATE: 20140301
